FAERS Safety Report 5494659-8 (Version None)
Quarter: 2007Q4

REPORT INFORMATION
  Report Type: 
  Country: None (occurrence: None)
  Receive Date: 20071015
  Receipt Date: 20070816
  Transmission Date: 20080405
  Serious: No
  Sender: FDA-Public Use
  Company Number: 2007SP002881

PATIENT
  Age: 71 Year
  Sex: Female
  Weight: 83.9154 kg

DRUGS (8)
  1. LUNESTA [Suspect]
     Indication: INSOMNIA
     Dosage: 2 MG;HS;ORAL, 2 MG;PRN;ORAL
     Route: 048
     Dates: start: 20070730, end: 20070813
  2. LUNESTA [Suspect]
     Indication: INSOMNIA
     Dosage: 2 MG;HS;ORAL, 2 MG;PRN;ORAL
     Route: 048
     Dates: start: 20070816
  3. METFORMIN HCL [Concomitant]
  4. LISINOPRIL [Concomitant]
  5. ATENOLOL [Concomitant]
  6. EVISTA [Concomitant]
  7. CALCIUM [Concomitant]
  8. VITAMIN CAP [Concomitant]

REACTIONS (2)
  - SOMNOLENCE [None]
  - THINKING ABNORMAL [None]
